FAERS Safety Report 13696808 (Version 1)
Quarter: 2017Q2

REPORT INFORMATION
  Report Type: Report from Study
  Country: ES (occurrence: ES)
  Receive Date: 20170628
  Receipt Date: 20170628
  Transmission Date: 20170830
  Serious: Yes (Life-Threatening, Hospitalization)
  Sender: FDA-Public Use
  Company Number: ES-ROCHE-1953442

PATIENT
  Age: 54 Year
  Sex: Male

DRUGS (16)
  1. HUMALOG [Concomitant]
     Active Substance: INSULIN LISPRO
     Dosage: 100 U/ML, SOLUCION INYECTABLE EN VIALES,  1 VIAL DE 10 ML?DAYS
     Route: 058
     Dates: start: 20151211
  2. ADIRO [Concomitant]
     Active Substance: ASPIRIN
     Dosage: 100 MG COMPRIMIDOS GASTRORRESISTENTES EFG , 30 COMPRIMIDOS?DAYS
     Route: 048
     Dates: start: 20110101
  3. TARGRETIN [Suspect]
     Active Substance: BEXAROTENE
     Indication: MYCOSIS FUNGOIDES
     Dosage: 75 MG, CAPSULAS BLANDAS, 100 CAPSULAS
     Route: 048
     Dates: start: 20151011, end: 20160830
  4. ESPIRONOLACTONA [Concomitant]
     Active Substance: SPIRONOLACTONE
     Route: 048
     Dates: start: 20160302, end: 20160830
  5. VINCRISTINA [Suspect]
     Active Substance: VINCRISTINE
     Indication: MYCOSIS FUNGOIDES
     Dosage: CYCLICAL
     Route: 042
     Dates: start: 20160311, end: 20160624
  6. EUTIROX [Concomitant]
     Active Substance: LEVOTHYROXINE SODIUM
     Dosage: 137 MICROGRAMOS COMPRIMIDOS , 100 COMPRIMIDOS?DAYS
     Route: 048
     Dates: start: 20110101
  7. METHOTREXATE (METHOTREXATE SODIUM) [Suspect]
     Active Substance: METHOTREXATE SODIUM
     Indication: MYCOSIS FUNGOIDES
     Route: 065
     Dates: start: 20160805, end: 20160806
  8. VALSARTAN. [Concomitant]
     Active Substance: VALSARTAN
     Dosage: DAYS
     Route: 048
     Dates: start: 20110101
  9. SEPTRIN [Concomitant]
     Active Substance: SULFAMETHOXAZOLE\TRIMETHOPRIM
     Dosage: 80 MG/400 MG COMPRIMIDOS , 100 COMPRIMIDOS?DAYS
     Route: 048
     Dates: start: 20151011
  10. ADRIAMYCIN [Suspect]
     Active Substance: DOXORUBICIN HYDROCHLORIDE
     Indication: MYCOSIS FUNGOIDES
     Dosage: DAYS
     Route: 042
     Dates: start: 20160311, end: 20160624
  11. PREDNISONA [Concomitant]
     Active Substance: PREDNISONE
     Indication: MYCOSIS FUNGOIDES
     Dosage: CYCLICAL
     Route: 042
     Dates: start: 20160311, end: 20160624
  12. RITUXIMAB [Suspect]
     Active Substance: RITUXIMAB
     Indication: MYCOSIS FUNGOIDES
     Dosage: 100 MG CONCENTRADO PARA SOLUCION PARA PERFUSION, 2 VIALES DE?CYCLICAL
     Route: 042
     Dates: start: 20160311, end: 20160624
  13. OMEPRAZOL [Concomitant]
     Active Substance: OMEPRAZOLE
     Dosage: DAYS
     Route: 048
     Dates: start: 20151011
  14. CICLOFOSFAMIDA [Suspect]
     Active Substance: CYCLOPHOSPHAMIDE
     Indication: MYCOSIS FUNGOIDES
     Dosage: CYCLICAL
     Route: 042
     Dates: start: 20160311, end: 20160624
  15. LANTUS [Concomitant]
     Active Substance: INSULIN GLARGINE
     Dosage: 100 UNIDADES/ML SOLUCION INYECTABLE EN UN CARTUCHO, 10 CARTUCHO?DAYS
     Route: 058
     Dates: start: 20151211
  16. LEVEMIR [Concomitant]
     Active Substance: INSULIN DETEMIR
     Dosage: 100 U/ML, SOLUCION INYECTABLE EN UNA PLUMA PRECARGADA (FLEXPEN?DAYS
     Route: 058
     Dates: start: 20151211

REACTIONS (2)
  - Left ventricular dysfunction [Recovering/Resolving]
  - Pulmonary oedema [Recovered/Resolved]

NARRATIVE: CASE EVENT DATE: 20160830
